FAERS Safety Report 7032082-5 (Version None)
Quarter: 2010Q4

REPORT INFORMATION
  Report Type: 
  Country: None (occurrence: None)
  Receive Date: 20101007
  Receipt Date: 20090918
  Transmission Date: 20110411
  Serious: No
  Sender: FDA-Public Use
  Company Number: US-KINGPHARMUSA00001-K200901161

PATIENT
  Sex: Female
  Weight: 65.76 kg

DRUGS (13)
  1. SONATA [Suspect]
     Indication: INSOMNIA
     Dosage: 10 MG, QHS
     Route: 048
     Dates: start: 20070101, end: 20090918
  2. ASPIRIN [Concomitant]
     Indication: CARDIAC DISORDER
     Dosage: 325 MG, QD
     Route: 048
  3. CELEBREX [Concomitant]
     Indication: ARTHRITIS
     Dosage: 100 MG, BID
     Route: 048
  4. OMEPRAZOLE [Concomitant]
     Indication: GASTROOESOPHAGEAL REFLUX DISEASE
     Dosage: 20 MG, BID
     Route: 048
  5. ATENOLOL [Concomitant]
     Dosage: 25 MG, QD
     Route: 048
  6. TRAMADOL HCL [Concomitant]
     Indication: ARTHRITIS
     Dosage: 100 MG, BID
     Route: 048
  7. LIPITOR [Concomitant]
     Indication: BLOOD CHOLESTEROL INCREASED
     Dosage: 40 MG, QD
     Route: 048
  8. FUROSEMIDE [Concomitant]
     Indication: DIURETIC THERAPY
     Dosage: 40 MG, QD
     Route: 048
  9. POTASSIUM [Concomitant]
     Dosage: 20 MG, QD
     Route: 048
  10. FISH OIL [Concomitant]
     Indication: SUPPLEMENTATION THERAPY
     Dosage: UNK, QD
  11. CALCIUM GLUCONATE [Concomitant]
  12. VITAMIN D [Concomitant]
  13. VITAMIN TAB [Concomitant]
     Indication: SUPPLEMENTATION THERAPY
     Dosage: UNK, QD

REACTIONS (4)
  - DEPRESSED MOOD [None]
  - DRUG EFFECT DECREASED [None]
  - INSOMNIA [None]
  - RESTLESS LEGS SYNDROME [None]
